FAERS Safety Report 5282238-7 (Version None)
Quarter: 2007Q1

REPORT INFORMATION
  Report Type: 
  Country: None (occurrence: None)
  Receive Date: 20070330
  Receipt Date: 20070319
  Transmission Date: 20070707
  Serious: Yes (Death, Other)
  Sender: FDA-Public Use
  Company Number: JP-PFIZER INC-2007022319

PATIENT
  Age: 53 Year
  Sex: Female

DRUGS (3)
  1. SOLU-MEDROL [Suspect]
     Indication: PULMONARY ALVEOLAR HAEMORRHAGE
     Route: 042
  2. PREDNISOLONE [Concomitant]
  3. PLASMA [Concomitant]
     Route: 051

REACTIONS (3)
  - BRONCHOPULMONARY ASPERGILLOSIS [None]
  - LUNG DISORDER [None]
  - MULTI-ORGAN FAILURE [None]
